FAERS Safety Report 17068800 (Version 1)
Quarter: 2019Q4

REPORT INFORMATION
  Report Type: Spontaneous
  Country: US (occurrence: US)
  Receive Date: 20191025
  Receipt Date: 20191025
  Transmission Date: 20200122
  Serious: No
  Sender: FDA-Public Use
  Company Number: None

PATIENT
  Age: 86 Year
  Sex: Female

DRUGS (1)
  1. IBRANCE [Suspect]
     Active Substance: PALBOCICLIB
     Indication: BREAST CANCER
     Route: 048
     Dates: start: 201909

REACTIONS (7)
  - Urine output decreased [None]
  - Nausea [None]
  - Malaise [None]
  - Blood pressure decreased [None]
  - Dehydration [None]
  - Bedridden [None]
  - Decreased appetite [None]

NARRATIVE: CASE EVENT DATE: 20191025
